FAERS Safety Report 6730073-2 (Version None)
Quarter: 2010Q2

REPORT INFORMATION
  Report Type: 
  Country: None (occurrence: None)
  Receive Date: 20100512
  Receipt Date: 20100407
  Transmission Date: 20101027
  Serious: Yes (Other)
  Sender: FDA-Public Use
  Company Number: 1000012222

PATIENT
  Sex: Female

DRUGS (3)
  1. SAVELLA [Suspect]
     Indication: FIBROMYALGIA
     Dosage: SEE IMAGE
     Route: 048
  2. SAVELLA [Suspect]
     Indication: FIBROMYALGIA
     Dosage: SEE IMAGE
     Route: 048
  3. SAVELLA [Suspect]
     Indication: FIBROMYALGIA
     Dosage: SEE IMAGE
     Route: 048

REACTIONS (8)
  - CERVICAL VERTEBRAL FRACTURE [None]
  - DEPRESSED MOOD [None]
  - DIZZINESS [None]
  - EYELID INJURY [None]
  - FACIAL BONES FRACTURE [None]
  - FALL [None]
  - SLEEP DISORDER [None]
  - UNEVALUABLE EVENT [None]
